FAERS Safety Report 11730583 (Version 3)
Quarter: 2015Q4

REPORT INFORMATION
  Report Type: Spontaneous
  Country: US (occurrence: US)
  Receive Date: 20151112
  Receipt Date: 20151214
  Transmission Date: 20160304
  Serious: Yes (Hospitalization)
  Sender: FDA-Public Use
  Company Number: US-ALLERGAN-1523296US

PATIENT
  Age: 54 Year
  Sex: Female

DRUGS (5)
  1. BOTOX [Suspect]
     Active Substance: ONABOTULINUMTOXINA
     Dosage: 300 UNITS, SINGLE
     Route: 030
     Dates: start: 20080602, end: 20080602
  2. BOTOX [Suspect]
     Active Substance: ONABOTULINUMTOXINA
     Indication: FIBROMYALGIA
     Dosage: UNK, SINGLE
     Route: 030
     Dates: start: 20150622, end: 20150622
  3. VOLTAREN [Suspect]
     Active Substance: DICLOFENAC SODIUM
     Indication: URTICARIA
  4. BOTOX [Suspect]
     Active Substance: ONABOTULINUMTOXINA
     Dosage: UNK UNK, SINGLE
     Route: 030
     Dates: start: 2005, end: 2005
  5. VOLTAREN [Suspect]
     Active Substance: DICLOFENAC SODIUM
     Indication: BLISTER
     Route: 061

REACTIONS (5)
  - Urticaria [Recovered/Resolved]
  - Pain [Not Recovered/Not Resolved]
  - Hypersensitivity [Recovered/Resolved]
  - Blister [Recovered/Resolved]
  - Off label use [Unknown]

NARRATIVE: CASE EVENT DATE: 20150622
